FAERS Safety Report 9630675 (Version 2)
Quarter: 2014Q1

REPORT INFORMATION
  Report Type: Spontaneous
  Country: US (occurrence: None)
  Receive Date: 20131016
  Receipt Date: 20140226
  Transmission Date: 20141002
  Serious: Yes (Hospitalization)
  Sender: FDA-Public Use
  Company Number: 2013AP008781

PATIENT
  Age: 59 Year
  Sex: Female
  Weight: 97.07 kg

DRUGS (11)
  1. TRAMADOL HYDROCHLORIDE [Suspect]
     Indication: PAIN
     Route: 048
  2. TRIAMTERENE/HCTZ [Suspect]
     Indication: POLYURIA
     Route: 048
     Dates: start: 201303
  3. PRAVASTATIN SODIUM [Suspect]
     Indication: BLOOD CHOLESTEROL INCREASED
     Dates: start: 2013
  4. CELEBREX [Suspect]
     Indication: OSTEOARTHRITIS
     Route: 048
  5. TYLENOL [Suspect]
  6. LEVTHYROXINE [Suspect]
     Indication: THYROID DISORDER
  7. WARFARIN [Suspect]
     Indication: BLOOD DISORDER
  8. PANTOPRAZOLE SODIUM [Suspect]
  9. METOPROLOL [Suspect]
  10. TEMAZEPAM [Suspect]
     Indication: INSOMNIA
  11. HYDROCHLOROTHIAZIDE [Concomitant]

REACTIONS (5)
  - Osteoarthritis [None]
  - Blood potassium decreased [None]
  - Drug ineffective [None]
  - Blood cholesterol increased [None]
  - Drug interaction [None]
